FAERS Safety Report 25465345 (Version 2)
Quarter: 2025Q3

REPORT INFORMATION
  Report Type: Spontaneous
  Country: EU (occurrence: EU)
  Receive Date: 20250622
  Receipt Date: 20250704
  Transmission Date: 20251020
  Serious: Yes (Other)
  Sender: CELLTRION
  Company Number: None

PATIENT

DRUGS (12)
  1. RITUXIMAB [Suspect]
     Active Substance: RITUXIMAB
     Indication: Lymphoma
     Route: 042
     Dates: start: 20250109, end: 20250109
  2. METHOTREXATE [Suspect]
     Active Substance: METHOTREXATE
     Indication: Lymphoma
     Route: 042
     Dates: start: 20250109, end: 20250109
  3. PROCARBAZINE [Suspect]
     Active Substance: PROCARBAZINE
     Indication: Lymphoma
     Route: 048
     Dates: start: 20250109, end: 20250113
  4. VINCRISTINE [Suspect]
     Active Substance: VINCRISTINE
     Indication: Lymphoma
     Route: 042
     Dates: start: 20250109, end: 20250109
  5. ALFUZOSIN HYDROCHLORIDE [Concomitant]
     Active Substance: ALFUZOSIN HYDROCHLORIDE
  6. ALPRAZOLAM [Concomitant]
     Active Substance: ALPRAZOLAM
  7. MONTMORILLONITE [Concomitant]
     Active Substance: MONTMORILLONITE
  8. ZOPICLONE [Concomitant]
     Active Substance: ZOPICLONE
  9. METOCLOPRAMIDE [Concomitant]
     Active Substance: METOCLOPRAMIDE
  10. ONDANSETRON [Concomitant]
     Active Substance: ONDANSETRON
  11. ENOXAPARIN SODIUM [Concomitant]
     Active Substance: ENOXAPARIN SODIUM
  12. INSULIN GLARGINE [Concomitant]
     Active Substance: INSULIN GLARGINE

REACTIONS (1)
  - Hepatic cytolysis [Recovering/Resolving]

NARRATIVE: CASE EVENT DATE: 20250113
